FAERS Safety Report 6052273-X (Version None)
Quarter: 2009Q1

REPORT INFORMATION
  Report Type: 
  Country: None (occurrence: None)
  Receive Date: 20090121
  Receipt Date: 20090106
  Transmission Date: 20090719
  Serious: Yes (Other)
  Sender: FDA-Public Use
  Company Number: 2009AL000244

PATIENT
  Age: 36 Year
  Sex: Female

DRUGS (2)
  1. METFORMIN HYDROCHLORIDE [Suspect]
     Indication: GESTATIONAL DIABETES
     Dosage: 500 MG; BID; PO
     Route: 048
     Dates: start: 20081008, end: 20081024
  2. LABETALOL HCL [Concomitant]

REACTIONS (4)
  - DRUG EXPOSURE DURING PREGNANCY [None]
  - INTRA-UTERINE DEATH [None]
  - PLACENTAL INFARCTION [None]
  - PLACENTAL INSUFFICIENCY [None]
